FAERS Safety Report 7561706-9 (Version None)
Quarter: 2011Q2

REPORT INFORMATION
  Report Type: 
  Country: None (occurrence: None)
  Receive Date: 20110621
  Receipt Date: 20110121
  Transmission Date: 20111010
  Serious: No
  Sender: FDA-Public Use
  Company Number: US-ASTRAZENECA-2011SE04602

PATIENT
  Age: 75 Year
  Sex: Male

DRUGS (4)
  1. NEXIUM [Concomitant]
  2. RHINOCORT [Suspect]
     Route: 045
  3. CRESTOR [Suspect]
     Route: 048
  4. TOPROL-XL [Suspect]
     Route: 048

REACTIONS (1)
  - MALAISE [None]
